FAERS Safety Report 10222391 (Version 1)
Quarter: 2014Q2

REPORT INFORMATION
  Report Type: Spontaneous
  Country: KR (occurrence: KR)
  Receive Date: 20140606
  Receipt Date: 20140606
  Transmission Date: 20141212
  Serious: Yes (Other)
  Sender: FDA-Public Use
  Company Number: KR-JNJFOC-20140602937

PATIENT
  Sex: 0

DRUGS (2)
  1. INFLIXIMAB, RECOMBINANT [Suspect]
     Indication: ANKYLOSING SPONDYLITIS
     Route: 042
  2. CT-P13 (REMICADE BIOSIMILAR) [Suspect]
     Indication: ANKYLOSING SPONDYLITIS
     Dosage: REMICADE BIOSIMILAR
     Route: 065

REACTIONS (1)
  - Tuberculosis [Unknown]
